FAERS Safety Report 9066646 (Version 1)
Quarter: 2013Q1

REPORT INFORMATION
  Report Type: Report from Study
  Country: US (occurrence: US)
  Receive Date: 20130131
  Receipt Date: 20130131
  Transmission Date: 20140127
  Serious: No
  Sender: FDA-Public Use
  Company Number: US-ABBOTT-12P-163-1007835-00

PATIENT
  Age: 52 Year
  Sex: Female
  Weight: 81.72 kg

DRUGS (8)
  1. HUMIRA [Suspect]
     Indication: PSORIASIS
     Dates: start: 20121106, end: 20121106
  2. HUMIRA [Suspect]
     Dates: start: 20121113
  3. COZAAR [Concomitant]
     Indication: HYPERTENSION
  4. LEVOTHYROXINE [Concomitant]
     Indication: HYPOTHYROIDISM
  5. TOPAMAX [Concomitant]
     Indication: MIGRAINE
  6. PREMARIN [Concomitant]
     Indication: HORMONE REPLACEMENT THERAPY
  7. METHOTREXATE [Concomitant]
     Indication: PSORIASIS
  8. CARDIZEM LA [Concomitant]
     Indication: HYPERTENSION

REACTIONS (2)
  - Injection site bruising [Recovered/Resolved]
  - Injection site pain [Not Recovered/Not Resolved]
